FAERS Safety Report 7589473-3 (Version None)
Quarter: 2011Q3

REPORT INFORMATION
  Report Type: 
  Country: None (occurrence: None)
  Receive Date: 20110705
  Receipt Date: 20110627
  Transmission Date: 20111222
  Serious: Yes (Death)
  Sender: FDA-Public Use
  Company Number: AR-GENZYME-CLOF-1001555

PATIENT
  Age: 10 Year
  Sex: Male
  Weight: 20 kg

DRUGS (9)
  1. CLOLAR [Suspect]
     Dosage: 34 MG, QD; DAYS 1-5
     Route: 065
     Dates: start: 20101109
  2. CYCLOPHOSPHAMIDE [Suspect]
     Indication: ACUTE LYMPHOCYTIC LEUKAEMIA
     Dosage: 350 MG X5, QD
     Route: 065
     Dates: start: 20101006
  3. ETOPOSIDE [Suspect]
     Indication: ACUTE LYMPHOCYTIC LEUKAEMIA
     Dosage: 130 MG X5, QD
     Route: 065
     Dates: start: 20101006
  4. CLOLAR [Suspect]
     Dosage: 34 MG, QD; DAYS 1-5
     Route: 065
     Dates: start: 20101214
  5. CLOLAR [Suspect]
     Indication: ACUTE LYMPHOCYTIC LEUKAEMIA
     Dosage: 34 MG, QD; DAYS 1-5
     Route: 065
     Dates: start: 20101006
  6. ETOPOSIDE [Suspect]
     Dosage: 130 MG X5, QD
     Route: 065
     Dates: start: 20101109
  7. ETOPOSIDE [Suspect]
     Dosage: 130 MG X5, QD
     Route: 065
     Dates: start: 20101214
  8. CYCLOPHOSPHAMIDE [Suspect]
     Dosage: 350 MG X5, QD
     Route: 065
     Dates: start: 20101214
  9. CYCLOPHOSPHAMIDE [Suspect]
     Dosage: 350 MG X5, QD
     Route: 065
     Dates: start: 20101109

REACTIONS (1)
  - SYSTEMIC CANDIDA [None]
